FAERS Safety Report 17764888 (Version 1)
Quarter: 2020Q2

REPORT INFORMATION
  Report Type: Report from Study
  Country: CA (occurrence: CA)
  Receive Date: 20200511
  Receipt Date: 20200511
  Transmission Date: 20200714
  Serious: Yes (Hospitalization, Other)
  Sender: FDA-Public Use
  Company Number: NVSC2020CA126081

PATIENT
  Age: 76 Year
  Sex: Male

DRUGS (1)
  1. SANDOSTATIN [Suspect]
     Active Substance: OCTREOTIDE ACETATE
     Indication: CARCINOID TUMOUR
     Dosage: 1 DF
     Route: 058
     Dates: start: 20200428

REACTIONS (3)
  - Malaise [Unknown]
  - Musculoskeletal chest pain [Unknown]
  - Pain [Unknown]

NARRATIVE: CASE EVENT DATE: 2020
